FAERS Safety Report 7589110-8 (Version None)
Quarter: 2011Q3

REPORT INFORMATION
  Report Type: 
  Country: None (occurrence: None)
  Receive Date: 20110705
  Receipt Date: 20110629
  Transmission Date: 20111222
  Serious: No
  Sender: FDA-Public Use
  Company Number: US-JNJFOC-20110700547

PATIENT
  Sex: Female
  Weight: 56.7 kg

DRUGS (4)
  1. SOMA [Concomitant]
     Indication: MUSCLE SPASMS
     Route: 048
  2. DILAUDID [Concomitant]
     Indication: BREAKTHROUGH PAIN
     Route: 048
  3. ESTRATEST [Concomitant]
     Indication: HORMONE REPLACEMENT THERAPY
     Route: 048
  4. FENTANYL-100 [Suspect]
     Indication: BACK PAIN
     Route: 062
     Dates: start: 20110622

REACTIONS (4)
  - PRODUCT QUALITY ISSUE [None]
  - WRONG TECHNIQUE IN DRUG USAGE PROCESS [None]
  - DRUG INEFFECTIVE [None]
  - PRODUCT ADHESION ISSUE [None]
